FAERS Safety Report 15657348 (Version 1)
Quarter: 2018Q4

REPORT INFORMATION
  Report Type: Spontaneous
  Country: JP (occurrence: JP)
  Receive Date: 20181126
  Receipt Date: 20181126
  Transmission Date: 20190205
  Serious: Yes (Death)
  Sender: FDA-Public Use
  Company Number: JP-PFIZER INC-2018480700

PATIENT
  Age: 47 Year
  Sex: Male

DRUGS (20)
  1. DOXORUBICIN HCL [Suspect]
     Active Substance: DOXORUBICIN HYDROCHLORIDE
     Dosage: UNK, CYCLIC (EPOCH)
  2. CYCLOPHOSPHAMIDE. [Suspect]
     Active Substance: CYCLOPHOSPHAMIDE
     Dosage: UNK, CYCLIC (R-CHASE, 3 CYCLES)
     Dates: start: 2015
  3. BENDAMUSTINE [Suspect]
     Active Substance: BENDAMUSTINE
     Indication: B-CELL LYMPHOMA
  4. PREDNISONE. [Suspect]
     Active Substance: PREDNISONE
     Indication: B-CELL LYMPHOMA
     Dosage: UNK, CYCLIC (R-CHOP, 6 CYCLES)
     Dates: start: 2005
  5. RITUXIMAB. [Suspect]
     Active Substance: RITUXIMAB
     Dosage: UNK, CYCLIC (R-FLU, 6 CYCLES )
  6. BENDAMUSTINE [Suspect]
     Active Substance: BENDAMUSTINE
     Indication: B-CELL LYMPHOMA
     Dosage: UNK, CYCLIC (R-BENDA, 1CYCLE)
     Dates: start: 2015
  7. DEXAMETHASONE. [Suspect]
     Active Substance: DEXAMETHASONE
     Indication: B-CELL LYMPHOMA
     Dosage: UNK, CYCLIC (R-CHASE, 3 CYCLES) (33 MG/ BODY, DAYS 1-3)
     Dates: start: 2015
  8. RITUXIMAB. [Suspect]
     Active Substance: RITUXIMAB
     Indication: B-CELL LYMPHOMA
     Dosage: UNK, CYCLIC (R-CHOP, 6 CYCLES)
     Dates: start: 2005
  9. VINCRISTINE SULFATE. [Suspect]
     Active Substance: VINCRISTINE SULFATE
     Indication: B-CELL LYMPHOMA
     Dosage: UNK, CYCLIC (R-CHOP, 6 CYCLES)
     Dates: start: 2005
  10. FLUDARABINE [Suspect]
     Active Substance: FLUDARABINE PHOSPHATE
     Indication: B-CELL LYMPHOMA
     Dosage: UNK, CYCLIC (R-FLU, 6 CYCLES )
     Dates: start: 2010
  11. CYTARABINE. [Suspect]
     Active Substance: CYTARABINE
     Dosage: UNK, CYCLIC (R-CHASE) FOR A TOTAL OF 3 CYCLES
     Dates: start: 2015
  12. ETOPOSIDE. [Suspect]
     Active Substance: ETOPOSIDE
     Indication: B-CELL LYMPHOMA
     Dosage: UNK, CYCLIC  (R-CHASE, 3 CYCLES)
     Dates: start: 2015
  13. ACLARUBICIN [Suspect]
     Active Substance: ACLARUBICIN
     Indication: B-CELL LYMPHOMA
     Dosage: UNK, CYCLIC (CAG, LOW-DOSE, 1CYCLE )
     Dates: start: 2015
  14. CYCLOPHOSPHAMIDE. [Suspect]
     Active Substance: CYCLOPHOSPHAMIDE
     Indication: B-CELL LYMPHOMA
     Dosage: UNK, CYCLIC (R-CHOP, 6 CYCLES)
     Dates: start: 2005
  15. RITUXIMAB. [Suspect]
     Active Substance: RITUXIMAB
     Dosage: UNK, CYCLIC (R-BENDA, 1CYCLE)
     Dates: start: 2015
  16. VINCRISTINE SULFATE. [Suspect]
     Active Substance: VINCRISTINE SULFATE
     Dosage: UNK, CYCLIC (EPOCH)
  17. CYTARABINE. [Suspect]
     Active Substance: CYTARABINE
     Indication: B-CELL LYMPHOMA
     Dosage: UNK, CYCLIC (CAG, LOW-DOSE, 1CYCLE )
     Dates: start: 2015
  18. G-CSF [Suspect]
     Active Substance: GRANULOCYTE COLONY-STIMULATING FACTOR NOS
     Indication: B-CELL LYMPHOMA
     Dosage: UNK UNK, CYCLIC CAG LOW-DOSE FOR A TOTAL OF 1 CYCLE
     Dates: start: 2015
  19. DOXORUBICIN HCL [Suspect]
     Active Substance: DOXORUBICIN HYDROCHLORIDE
     Indication: B-CELL LYMPHOMA
     Dosage: UNK, CYCLIC (R-CHOP, 6 CYCLES)
     Dates: start: 2005
  20. RITUXIMAB. [Suspect]
     Active Substance: RITUXIMAB
     Dosage: UNK, CYCLIC (R-CHASE, 3 CYCLES)
     Dates: start: 2015

REACTIONS (4)
  - Second primary malignancy [Fatal]
  - Myelodysplastic syndrome [Fatal]
  - Acute myeloid leukaemia [Fatal]
  - Diffuse large B-cell lymphoma [Fatal]
